FAERS Safety Report 8787275 (Version 1)
Quarter: 2012Q4

REPORT INFORMATION
  Report Type: 
  Country: DE (occurrence: DE)
  Receive Date: 20120914
  Receipt Date: 20120914
  Transmission Date: 20130627
  Serious: Yes (Hospitalization)
  Sender: FDA-Public Use
  Company Number: DE-AMGEN-DEUSP2012031169

PATIENT
  Age: 78 Year
  Sex: Female

DRUGS (14)
  1. NEULASTA [Suspect]
     Indication: B-CELL LYMPHOMA
     Dosage: 6 mg, q2wk
     Route: 058
     Dates: start: 20120405
  2. RITUXIMAB [Suspect]
     Indication: B-CELL LYMPHOMA
     Dosage: 375 mg/m2, per chemo regim
     Route: 042
     Dates: start: 20120328
  3. DOXORUBICIN [Suspect]
     Indication: B-CELL LYMPHOMA
     Dosage: 50 mg/m2, q2wk
     Route: 042
     Dates: start: 20120402
  4. CYCLOPHOSPHAMIDE [Suspect]
     Indication: B-CELL LYMPHOMA
     Dosage: 750 mg/m2, q2wk
     Route: 042
     Dates: start: 20120402
  5. PANTOPRAZOLE [Concomitant]
     Indication: ULCER
     Dosage: 40 mg, qd
     Route: 048
     Dates: start: 20120315
  6. LEVOTHYROXINE SODIUM [Concomitant]
     Dosage: 75 mug, qd
     Route: 048
     Dates: start: 20120315
  7. TRIMETHOPRIM SULFA [Concomitant]
     Indication: PNEUMOCYSTIS JIROVECI PNEUMONIA
     Dosage: 960 mg, 3 times/wk
     Route: 048
     Dates: start: 20120315
  8. ALLOPURINOL [Concomitant]
     Indication: GOUT
     Dosage: 300 mg, qd
     Dates: start: 20120315
  9. BISOPROLOL [Concomitant]
     Indication: HYPERTENSION
     Dosage: 5 mg, qd
     Route: 048
     Dates: start: 20120315
  10. HYDROCHLOROTHIAZIDE [Concomitant]
     Indication: HYPERTENSION
     Dosage: 25 mg, UNK
     Route: 048
     Dates: start: 20120315
  11. CAPTOPRIL [Concomitant]
     Indication: HYPERTENSION
     Dosage: 100 mg, bid
     Route: 048
     Dates: start: 20120315
  12. AMLODIPINE [Concomitant]
     Indication: HYPERTENSION
     Dosage: 5 mg, qd
     Route: 048
     Dates: start: 20120315
  13. SIMVASTATIN [Concomitant]
     Indication: HYPERCHOLESTEROLAEMIA
     Dosage: 20 mg, UNK
     Route: 048
     Dates: start: 20120315
  14. ENOXAPARIN SODIUM [Concomitant]
     Indication: THROMBOSIS
     Dosage: 4 ml, qd
     Route: 042
     Dates: start: 20120315

REACTIONS (1)
  - Nausea [Recovered/Resolved]
